FAERS Safety Report 8888175 (Version 4)
Quarter: 2013Q1

REPORT INFORMATION
  Report Type: Report from Study
  Country: US (occurrence: US)
  Receive Date: 20121106
  Receipt Date: 20130107
  Transmission Date: 20140127
  Serious: No
  Sender: FDA-Public Use
  Company Number: US-VERTEX PHARMACEUTICAL INC.-2012-023754

PATIENT
  Age: 61 None
  Sex: Male
  Weight: 75 kg

DRUGS (6)
  1. VX-950 (TELAPREVIR) [Suspect]
     Indication: HEPATITIS C
     Dosage: 750 MG, TID
     Route: 048
     Dates: start: 20121021
  2. RIBASPHERE [Suspect]
     Indication: HEPATITIS C
     Dosage: 600 MG, BID
     Route: 048
     Dates: start: 20121021
  3. RIBASPHERE [Suspect]
     Dosage: 2 DF, UNK
     Dates: start: 20121101
  4. PEGASYS [Suspect]
     Indication: HEPATITIS C
     Dosage: 180 ?G, WEEKLY
     Route: 058
     Dates: start: 20121021
  5. LISINOPRIL [Concomitant]
     Dosage: 200 MG, QD
  6. LISINOPRIL [Concomitant]
     Dosage: 5 MG, QD

REACTIONS (13)
  - Drug dose omission [Unknown]
  - Dyspnoea [Unknown]
  - Panic attack [Unknown]
  - Influenza like illness [Unknown]
  - Headache [Unknown]
  - Dizziness [Not Recovered/Not Resolved]
  - Feeling abnormal [Unknown]
  - Fatigue [Unknown]
  - Diarrhoea [Unknown]
  - Anal pruritus [Unknown]
  - Nausea [Recovered/Resolved]
  - Anaemia [Unknown]
  - Pruritus [Unknown]
